FAERS Safety Report 11538602 (Version 15)
Quarter: 2018Q3

REPORT INFORMATION
  Report Type: Report from Study
  Country: CA (occurrence: CA)
  Receive Date: 20150923
  Receipt Date: 20180921
  Transmission Date: 20181010
  Serious: Yes (Life-Threatening, Hospitalization, Other)
  Sender: FDA-Public Use
  Company Number: PHHY2015CA113146

PATIENT
  Age: 55 Year
  Sex: Male

DRUGS (5)
  1. PROGLYCEM [Concomitant]
     Active Substance: DIAZOXIDE
     Indication: PRODUCT USED FOR UNKNOWN INDICATION
     Dosage: UNK
     Route: 065
  2. SANDOSTATIN LAR DEPOT [Suspect]
     Active Substance: OCTREOTIDE ACETATE
     Indication: PANCREATIC NEUROENDOCRINE TUMOUR
     Dosage: 30 MG, QMO (EVERY 4 WEEKS)
     Route: 030
     Dates: start: 20110819
  3. BUTAMOL [Concomitant]
     Indication: PRODUCT USED FOR UNKNOWN INDICATION
     Dosage: UNK
     Route: 065
  4. SANDOSTATIN [Suspect]
     Active Substance: OCTREOTIDE ACETATE
     Indication: PANCREATIC NEUROENDOCRINE TUMOUR
     Dosage: UNK
     Route: 058
     Dates: start: 201105, end: 20110529
  5. FLOVENT [Concomitant]
     Active Substance: FLUTICASONE PROPIONATE
     Indication: PRODUCT USED FOR UNKNOWN INDICATION
     Dosage: UNK
     Route: 065

REACTIONS (26)
  - Wound [Unknown]
  - Visual impairment [Unknown]
  - Arthralgia [Unknown]
  - Heart rate irregular [Unknown]
  - Injection site pain [Unknown]
  - Face oedema [Unknown]
  - Vomiting [Unknown]
  - Feeling abnormal [Unknown]
  - Respiratory rate increased [Unknown]
  - Chills [Unknown]
  - Cyanosis [Unknown]
  - Memory impairment [Unknown]
  - Abnormal behaviour [Unknown]
  - Yellow skin [Unknown]
  - Dysarthria [Unknown]
  - Renal failure [Unknown]
  - Eating disorder [Unknown]
  - Asthenia [Unknown]
  - Blood pressure increased [Unknown]
  - Eye disorder [Unknown]
  - Oedema peripheral [Unknown]
  - Somnolence [Unknown]
  - Hypoglycaemia [Unknown]
  - Gait disturbance [Unknown]
  - Dyspnoea [Unknown]
  - Anxiety [Unknown]

NARRATIVE: CASE EVENT DATE: 20180424
